FAERS Safety Report 7405614-2 (Version None)
Quarter: 2011Q1

REPORT INFORMATION
  Report Type: 
  Country: None (occurrence: None)
  Receive Date: 20110330
  Receipt Date: 20110318
  Transmission Date: 20110831
  Serious: Yes (Other)
  Sender: FDA-Public Use
  Company Number: IPC201103-000345

PATIENT
  Sex: Female

DRUGS (2)
  1. METOCLOPRAMIDE HYDROCHLORIDE [Suspect]
     Dosage: 5 MG, ORAL
     Route: 048
     Dates: start: 20090701, end: 20100201
  2. REGLAN [Suspect]
     Dosage: ORAL
     Route: 048
     Dates: start: 20090701, end: 20100201

REACTIONS (1)
  - RESTLESS LEGS SYNDROME [None]
